FAERS Safety Report 21662234 (Version 4)
Quarter: 2022Q4

REPORT INFORMATION
  Report Type: Spontaneous
  Country: CA (occurrence: CA)
  Receive Date: 20221130
  Receipt Date: 20221215
  Transmission Date: 20230113
  Serious: Yes (Other)
  Sender: FDA-Public Use
  Company Number: CA-PFIZER INC-202201150849

PATIENT
  Age: 67 Year
  Sex: Female

DRUGS (3)
  1. ABRILADA [Suspect]
     Active Substance: ADALIMUMAB-AFZB
     Indication: Colitis ulcerative
     Dosage: 40 MG, 1X2 WEEK PREFILLED PEN
     Route: 058
     Dates: start: 20220711, end: 202207
  2. ABRILADA [Suspect]
     Active Substance: ADALIMUMAB-AFZB
     Dosage: 40 MG,WEEK 0: 160MG, WEEK 2: 80MG, WEEK 4: 40 MG EVERY OTHER WEEK
     Route: 058
     Dates: start: 20220826, end: 2022
  3. CORTISONE [Concomitant]
     Active Substance: CORTISONE
     Dosage: 1 DF, DOSAGE NOT AVAILABLE
     Route: 065

REACTIONS (10)
  - Pneumonia [Not Recovered/Not Resolved]
  - Neuropathy peripheral [Not Recovered/Not Resolved]
  - Pain [Not Recovered/Not Resolved]
  - Arthritis [Not Recovered/Not Resolved]
  - Tendonitis [Not Recovered/Not Resolved]
  - Carpal tunnel syndrome [Not Recovered/Not Resolved]
  - Malaise [Unknown]
  - Influenza like illness [Recovering/Resolving]
  - Asthma [Not Recovered/Not Resolved]
  - Nasopharyngitis [Recovered/Resolved]

NARRATIVE: CASE EVENT DATE: 20220101
